FAERS Safety Report 8050051-3 (Version None)
Quarter: 2012Q1

REPORT INFORMATION
  Report Type: 
  Country: None (occurrence: None)
  Receive Date: 20120117
  Receipt Date: 20120111
  Transmission Date: 20120608
  Serious: Yes (Hospitalization)
  Sender: FDA-Public Use
  Company Number: US-SANOFI-AVENTIS-2012SA002227

PATIENT
  Age: 68 Year
  Sex: Female

DRUGS (5)
  1. VALIUM [Concomitant]
     Indication: ANXIETY
  2. MULTAQ [Suspect]
     Indication: ATRIAL FIBRILLATION
     Route: 048
     Dates: start: 20110101
  3. DOXYCYCLINE [Suspect]
     Indication: SINUSITIS
     Route: 065
     Dates: start: 20110101
  4. WARFARIN SODIUM [Concomitant]
  5. VALSARTAN [Concomitant]
     Indication: HYPERTENSION

REACTIONS (3)
  - H1N1 INFLUENZA [None]
  - SINUSITIS [None]
  - CONDITION AGGRAVATED [None]
